FAERS Safety Report 9161527 (Version 1)
Quarter: 2013Q1

REPORT INFORMATION
  Report Type: Spontaneous
  Country: US (occurrence: US)
  Receive Date: 20130313
  Receipt Date: 20130313
  Transmission Date: 20140127
  Serious: No
  Sender: FDA-Public Use
  Company Number: US-PFIZER INC-2013082109

PATIENT
  Age: 59 Year
  Sex: Female
  Weight: 57 kg

DRUGS (1)
  1. LEVOXYL [Suspect]
     Indication: HYPOTHYROIDISM
     Dosage: 675 UG, WEEKLY, (2X50UG TABLET FOR 6 DAYS, 75UG TABLET FOR ONE DAY)
     Route: 048
     Dates: start: 2008

REACTIONS (2)
  - Product quality issue [Unknown]
  - Blood thyroid stimulating hormone increased [Unknown]
